FAERS Safety Report 5291795-6 (Version None)
Quarter: 2007Q2

REPORT INFORMATION
  Report Type: 
  Country: None (occurrence: None)
  Receive Date: 20070410
  Receipt Date: 20070330
  Transmission Date: 20071010
  Serious: Yes (Disabling)
  Sender: FDA-Public Use
  Company Number: 2006UW24683

PATIENT
  Age: 39 Year
  Sex: Female
  Weight: 135 kg

DRUGS (1)
  1. SEROQUEL [Suspect]
     Indication: DEPRESSION
     Route: 048
     Dates: start: 20040301, end: 20040801

REACTIONS (2)
  - DIABETES MELLITUS [None]
  - NARCOLEPSY [None]
